FAERS Safety Report 4559047-7 (Version None)
Quarter: 2005Q1

REPORT INFORMATION
  Report Type: 
  Country: None (occurrence: None)
  Receive Date: 20050124
  Receipt Date: 20050111
  Transmission Date: 20050727
  Serious: Yes (Hospitalization)
  Sender: FDA-Public Use
  Company Number: US-JNJFOC-20040803759

PATIENT
  Sex: Female
  Weight: 67.59 kg

DRUGS (3)
  1. REMICADE [Suspect]
     Indication: RHEUMATOID ARTHRITIS
     Route: 042
  2. METHOTREXATE [Concomitant]
     Indication: RHEUMATOID ARTHRITIS
  3. BEXTRA [Concomitant]
     Indication: RHEUMATOID ARTHRITIS

REACTIONS (1)
  - KNEE ARTHROPLASTY [None]
